FAERS Safety Report 6704803-X (Version None)
Quarter: 2010Q2

REPORT INFORMATION
  Report Type: 
  Country: None (occurrence: None)
  Receive Date: 20100430
  Receipt Date: 20100218
  Transmission Date: 20101027
  Serious: No
  Sender: FDA-Public Use
  Company Number: US-ASTRAZENECA-2010SE07227

PATIENT
  Sex: Male
  Weight: 72.6 kg

DRUGS (2)
  1. NEXIUM [Suspect]
     Indication: DYSPEPSIA
     Route: 048
  2. XANAX [Concomitant]
     Indication: ANXIETY

REACTIONS (2)
  - ERECTILE DYSFUNCTION [None]
  - SPERM COUNT DECREASED [None]
